FAERS Safety Report 9342619 (Version 1)
Quarter: 2013Q2

REPORT INFORMATION
  Report Type: Spontaneous
  Country: US (occurrence: US)
  Receive Date: 20130611
  Receipt Date: 20130611
  Transmission Date: 20140414
  Serious: No
  Sender: FDA-Public Use
  Company Number: US-PFIZER INC-2013175270

PATIENT
  Age: 54 Year
  Sex: Female

DRUGS (1)
  1. EFFEXOR [Suspect]
     Indication: FIBROMYALGIA
     Dosage: UNK
     Dates: start: 2006

REACTIONS (2)
  - Off label use [Recovered/Resolved]
  - Weight increased [Not Recovered/Not Resolved]
